FAERS Safety Report 13689695 (Version 1)
Quarter: 2017Q2

REPORT INFORMATION
  Report Type: Spontaneous
  Country: GB (occurrence: GB)
  Receive Date: 20170626
  Receipt Date: 20170626
  Transmission Date: 20170830
  Serious: Yes (Hospitalization)
  Sender: FDA-Public Use
  Company Number: GB-VIFOR (INTERNATIONAL) INC.-VIT-2017-06706

PATIENT
  Age: 56 Year
  Sex: Male
  Weight: 128 kg

DRUGS (4)
  1. PIOGLITAZONE HYDROCHLORIDE. [Concomitant]
     Active Substance: PIOGLITAZONE HYDROCHLORIDE
  2. FOLATE SODIUM [Concomitant]
     Active Substance: FOLATE SODIUM
  3. SODIUM BICARBONATE. [Concomitant]
     Active Substance: SODIUM BICARBONATE
  4. MIRCERA [Suspect]
     Active Substance: METHOXY POLYETHYLENE GLYCOL-EPOETIN BETA
     Indication: NEPHROGENIC ANAEMIA
     Route: 065

REACTIONS (7)
  - Tachycardia [Recovered/Resolved]
  - Diarrhoea [Recovered/Resolved]
  - Vomiting [Recovered/Resolved]
  - Blood pressure increased [Recovered/Resolved]
  - Musculoskeletal pain [Recovered/Resolved]
  - Abdominal pain [Recovered/Resolved]
  - Incoherent [Recovered/Resolved]
